FAERS Safety Report 25320111 (Version 2)
Quarter: 2025Q3

REPORT INFORMATION
  Report Type: Spontaneous
  Country: CA (occurrence: CA)
  Receive Date: 20250515
  Receipt Date: 20250909
  Transmission Date: 20251021
  Serious: Yes (Hospitalization)
  Sender: BIOMARIN
  Company Number: CA-BIOMARINAP-CA-2025-163989

PATIENT
  Age: 10 Year
  Sex: Male
  Weight: 16.5 kg

DRUGS (1)
  1. VIMIZIM [Suspect]
     Active Substance: ELOSULFASE ALFA
     Indication: Mucopolysaccharidosis IV
     Dosage: 35 UNK, QW
     Dates: start: 20180511

REACTIONS (2)
  - Disease progression [Not Recovered/Not Resolved]
  - Vascular access complication [Unknown]

NARRATIVE: CASE EVENT DATE: 20250201
